FAERS Safety Report 5122001-0 (Version None)
Quarter: 2006Q4

REPORT INFORMATION
  Report Type: 
  Country: None (occurrence: None)
  Receive Date: 20061006
  Receipt Date: 20060719
  Transmission Date: 20070319
  Serious: Yes (Death, Other)
  Sender: FDA-Public Use
  Company Number: PHFR2006GB02296

PATIENT
  Age: 45 Year
  Sex: Male

DRUGS (13)
  1. ZOMETA [Suspect]
     Indication: BONE PAIN
     Dosage: 4 MG, ONCE/SINGLE
     Route: 042
     Dates: start: 20060607
  2. OPIOIDS [Concomitant]
     Route: 065
  3. PIROXICAM [Suspect]
     Indication: BONE PAIN
     Dosage: 20 MG, PRN
     Route: 048
     Dates: start: 20060519, end: 20060612
  4. BENDROFLUMETHIAZIDE [Suspect]
     Indication: OEDEMA
     Dosage: 5MG DAILY
     Route: 048
     Dates: start: 20060611, end: 20060612
  5. LANSOPRAZOLE [Concomitant]
     Indication: PROPHYLAXIS AGAINST GASTROINTESTINAL ULCER
     Dosage: 30MG DAILY
     Route: 048
     Dates: end: 20060514
  6. FINASTERIDE [Concomitant]
     Indication: PROSTATE CANCER
     Dosage: 5MG DAILY
     Route: 048
     Dates: end: 20060513
  7. METOCLOPRAMIDE [Concomitant]
     Indication: NAUSEA
     Dosage: 30MG DAILY
     Route: 048
     Dates: end: 20060513
  8. DEXAMETHASONE TAB [Concomitant]
     Indication: LYMPHADENECTOMY
     Dosage: 4MG DAILY
     Dates: end: 20060515
  9. ACETAMINOPHEN [Concomitant]
     Indication: PAIN
     Dosage: 4G DAILY
     Route: 048
     Dates: end: 20060513
  10. CIPROFLOXACIN [Concomitant]
     Indication: URINARY TRACT INFECTION
     Dosage: 1G DAILY
     Route: 048
     Dates: start: 20060531, end: 20060606
  11. ALFENTANIL [Concomitant]
     Indication: PAIN
     Dosage: 20MG DAILY
     Route: 058
     Dates: start: 20060612, end: 20060615
  12. MIDAZOLAM HYDROCHLORIDE [Concomitant]
     Indication: ANXIETY
     Dosage: 10MG DAILY
     Route: 058
     Dates: start: 20060530, end: 20060615
  13. BUSCOPAN [Concomitant]
     Indication: INCREASED BRONCHIAL SECRETION
     Dosage: 60 - 120MG DAILY
     Route: 058
     Dates: start: 20060614, end: 20060615

REACTIONS (16)
  - BLOOD CREATININE INCREASED [None]
  - BLOOD UREA INCREASED [None]
  - BONE LESION [None]
  - DISEASE PROGRESSION [None]
  - HYPERKALAEMIA [None]
  - HYPOCALCAEMIA [None]
  - METASTASES TO BONE [None]
  - PELVIC MASS [None]
  - PROSTATE CANCER METASTATIC [None]
  - RENAL FAILURE [None]
  - SOMNOLENCE [None]
  - SUPRAPUBIC CATHETER INSERTION [None]
  - TETANY [None]
  - THROMBOSIS [None]
  - URINARY RETENTION [None]
  - URINARY TRACT OBSTRUCTION [None]
